FAERS Safety Report 19733850 (Version 1)
Quarter: 2021Q3

REPORT INFORMATION
  Report Type: Spontaneous
  Country: IT (occurrence: IT)
  Receive Date: 20210823
  Receipt Date: 20210823
  Transmission Date: 20211014
  Serious: Yes (Death, Life-Threatening, Hospitalization, Other)
  Sender: FDA-Public Use
  Company Number: IT-ACCORD-234253

PATIENT
  Age: 66 Year

DRUGS (1)
  1. ALLOPURINOL. [Suspect]
     Active Substance: ALLOPURINOL
     Indication: HYPERURICAEMIA

REACTIONS (4)
  - Drug reaction with eosinophilia and systemic symptoms [Fatal]
  - Renal impairment [Unknown]
  - Cardiac arrest [Fatal]
  - Hepatic function abnormal [Unknown]
